FAERS Safety Report 15769448 (Version 3)
Quarter: 2019Q1

REPORT INFORMATION
  Report Type: Spontaneous
  Country: JP (occurrence: JP)
  Receive Date: 20181228
  Receipt Date: 20190320
  Transmission Date: 20190417
  Serious: Yes (Death, Other)
  Sender: FDA-Public Use
  Company Number: JP-BRISTOL-MYERS SQUIBB COMPANY-BMS-2018-122327

PATIENT
  Age: 67 Year
  Sex: Male
  Weight: 53 kg

DRUGS (1)
  1. OPDIVO [Suspect]
     Active Substance: NIVOLUMAB
     Indication: HEAD AND NECK CANCER
     Dosage: 160 MG, Q2W
     Route: 041
     Dates: start: 20170920, end: 20171004

REACTIONS (3)
  - Malignant neoplasm progression [Fatal]
  - Pneumonia aspiration [Unknown]
  - Pneumonitis [Unknown]

NARRATIVE: CASE EVENT DATE: 20171018
